FAERS Safety Report 25739557 (Version 1)
Quarter: 2025Q3

REPORT INFORMATION
  Report Type: Spontaneous
  Country: US (occurrence: US)
  Receive Date: 20250829
  Receipt Date: 20250829
  Transmission Date: 20251020
  Serious: No
  Sender: ROCHE
  Company Number: US-ROCHE-10000372392

PATIENT
  Sex: Female

DRUGS (1)
  1. XOLAIR [Suspect]
     Active Substance: OMALIZUMAB
     Indication: Idiopathic urticaria
     Dosage: (STRENGTH REPORTED AS: 300 MG/2ML), (DOSE: 1 PEN)
     Route: 058
     Dates: start: 202505

REACTIONS (2)
  - Urticaria [Unknown]
  - Drug ineffective [Unknown]
